FAERS Safety Report 20505758 (Version 2)
Quarter: 2022Q3

REPORT INFORMATION
  Report Type: Report from Study
  Country: US (occurrence: US)
  Receive Date: 20220223
  Receipt Date: 20220720
  Transmission Date: 20221026
  Serious: Yes (Other)
  Sender: FDA-Public Use
  Company Number: US-BAYER-2022A026386

PATIENT
  Age: 43 Year
  Sex: Female
  Weight: 73.016 kg

DRUGS (12)
  1. GADOBUTROL [Suspect]
     Active Substance: GADOBUTROL
     Indication: Multiple sclerosis
     Dosage: UNK, ONCE
  2. GADOBUTROL [Suspect]
     Active Substance: GADOBUTROL
     Indication: Hepatic cancer
  3. GADOBUTROL [Suspect]
     Active Substance: GADOBUTROL
     Indication: Breast cancer female
  4. OPTIMARK [Suspect]
     Active Substance: GADOVERSETAMIDE
  5. GADOLINIUM [Suspect]
     Active Substance: GADOLINIUM
  6. LITHIUM [Concomitant]
     Active Substance: LITHIUM
  7. QUETIAPINE [Concomitant]
     Active Substance: QUETIAPINE
  8. DOXYCYCLINE [Concomitant]
     Active Substance: DOXYCYCLINE
  9. ESOMEPRAZOLE [Concomitant]
     Active Substance: ESOMEPRAZOLE
  10. FOLATE SODIUM [Concomitant]
     Active Substance: FOLATE SODIUM
  11. ASCORBIC ACID [Concomitant]
     Active Substance: ASCORBIC ACID
  12. VITAMIN B12 [Concomitant]
     Active Substance: CYANOCOBALAMIN

REACTIONS (3)
  - Gadolinium deposition disease [None]
  - Nontherapeutic agent urine positive [None]
  - Cytokine increased [None]
